FAERS Safety Report 10060976 (Version 2)
Quarter: 2015Q1

REPORT INFORMATION
  Report Type: Spontaneous
  Country: SE (occurrence: SE)
  Receive Date: 20140405
  Receipt Date: 20150317
  Transmission Date: 20150720
  Serious: Yes (Hospitalization)
  Sender: FDA-Public Use
  Company Number: SE-ROCHE-1378244

PATIENT
  Age: 83 Year
  Sex: Female

DRUGS (9)
  1. LUCENTIS [Suspect]
     Active Substance: RANIBIZUMAB
     Dosage: 19TH INJECTION
     Route: 050
     Dates: start: 20140108
  2. PULMICORT TURBUHALER [Concomitant]
     Active Substance: BUDESONIDE
     Route: 065
  3. LAXOBERAL [Concomitant]
     Active Substance: SODIUM PICOSULFATE
     Route: 065
  4. ATACAND [Concomitant]
     Active Substance: CANDESARTAN CILEXETIL
     Route: 065
  5. BRICANYL [Concomitant]
     Active Substance: TERBUTALINE SULFATE
     Route: 065
  6. LUCENTIS [Suspect]
     Active Substance: RANIBIZUMAB
     Dosage: 18TH INJECTION
     Route: 050
     Dates: start: 20131210
  7. LUCENTIS [Suspect]
     Active Substance: RANIBIZUMAB
     Indication: AGE-RELATED MACULAR DEGENERATION
     Dosage: FORM STRENGTH : 10 MG/ML
     Route: 050
     Dates: start: 200803
  8. TROMBYL [Concomitant]
     Active Substance: ASPIRIN
     Route: 065
  9. FELODIPINE. [Concomitant]
     Active Substance: FELODIPINE
     Route: 065

REACTIONS (1)
  - Cerebral infarction [Not Recovered/Not Resolved]

NARRATIVE: CASE EVENT DATE: 20140103
